FAERS Safety Report 24716202 (Version 1)
Quarter: 2024Q4

REPORT INFORMATION
  Report Type: Spontaneous
  Country: US (occurrence: US)
  Receive Date: 20241210
  Receipt Date: 20241210
  Transmission Date: 20250115
  Serious: No
  Sender: STALLERGENES
  Company Number: US-STALCOR-2024-AER-02589

PATIENT
  Sex: Male

DRUGS (5)
  1. PALFORZIA [Suspect]
     Active Substance: PEANUT
     Indication: Food allergy
     Dosage: TITRATION DOSE 300MG: LVL 11: MIX CONTENTS OF 1 SACHET WELL WITH SEMISOLID FOOD AS DIRECTED AND CONS
     Route: 048
  2. ALBUTEROL SULFATE [Concomitant]
     Active Substance: ALBUTEROL SULFATE
     Indication: Product used for unknown indication
  3. D3 VITAMIIN [Concomitant]
     Indication: Product used for unknown indication
     Dosage: CHW 2.5-5.00
  4. FIBER THERAPY (CALCIUM POLYCARBOPHIL) [Concomitant]
     Active Substance: CALCIUM POLYCARBOPHIL
     Indication: Product used for unknown indication
     Dosage: CHW 2.5-5.00
  5. MULTIVITAMIN [ASCORBIC ACID;COLECALCIFEROL;DEXPANTHENOL;NICOTINAMIDE;P [Concomitant]
     Indication: Product used for unknown indication

REACTIONS (1)
  - Abdominal discomfort [Unknown]
